FAERS Safety Report 15623512 (Version 6)
Quarter: 2019Q2

REPORT INFORMATION
  Report Type: Report from Study
  Country: US (occurrence: US)
  Receive Date: 20181115
  Receipt Date: 20190515
  Transmission Date: 20190711
  Serious: Yes (Hospitalization)
  Sender: FDA-Public Use
  Company Number: US-ACTELION-A-NJ2017-153845

PATIENT
  Age: 42 Year
  Sex: Female
  Weight: 120.64 kg

DRUGS (14)
  1. SILDENAFIL. [Suspect]
     Active Substance: SILDENAFIL
     Indication: PRODUCT USED FOR UNKNOWN INDICATION
     Route: 065
  2. ONDASETRON [Concomitant]
     Active Substance: ONDANSETRON
  3. LEFLUNOMIDE. [Concomitant]
     Active Substance: LEFLUNOMIDE
  4. POTASSIUM CHLORIDE. [Concomitant]
     Active Substance: POTASSIUM CHLORIDE
  5. LEVOCETIRIZINE [Concomitant]
     Active Substance: LEVOCETIRIZINE
  6. PREDNISONE. [Concomitant]
     Active Substance: PREDNISONE
  7. XELJANZ [Concomitant]
     Active Substance: TOFACITINIB CITRATE
  8. UPTRAVI [Suspect]
     Active Substance: SELEXIPAG
     Indication: PULMONARY ARTERIAL HYPERTENSION
     Dosage: 1600 MCG, BID
     Route: 048
     Dates: start: 20161214
  9. HYDROXYCHLOROQUINE [Concomitant]
     Active Substance: HYDROXYCHLOROQUINE
  10. ELIQUIS [Concomitant]
     Active Substance: APIXABAN
  11. PRILOSEC [Concomitant]
     Active Substance: OMEPRAZOLE MAGNESIUM
  12. DOXYCYCLINE. [Concomitant]
     Active Substance: DOXYCYCLINE
  13. OPSUMIT [Suspect]
     Active Substance: MACITENTAN
     Indication: PULMONARY ARTERIAL HYPERTENSION
     Dosage: 10 MG, QD
     Route: 048
     Dates: start: 20170429
  14. DULERA [Concomitant]
     Active Substance: FORMOTEROL FUMARATE DIHYDRATE\MOMETASONE FUROATE

REACTIONS (26)
  - Dyspnoea exertional [Recovered/Resolved]
  - Chest discomfort [Unknown]
  - Menorrhagia [Not Recovered/Not Resolved]
  - Dysphagia [Unknown]
  - Product dose omission [Not Recovered/Not Resolved]
  - Weight increased [Recovered/Resolved]
  - Cellulitis [Not Recovered/Not Resolved]
  - Sleep apnoea syndrome [Unknown]
  - Unevaluable event [Not Recovered/Not Resolved]
  - Bronchitis [Unknown]
  - Iron deficiency anaemia [Not Recovered/Not Resolved]
  - Haemoglobin decreased [Not Recovered/Not Resolved]
  - Headache [Unknown]
  - Abdominal distension [Not Recovered/Not Resolved]
  - Epistaxis [Unknown]
  - Back pain [Unknown]
  - Fluid overload [Recovered/Resolved]
  - Pain in extremity [Unknown]
  - Cardiac failure acute [Recovered/Resolved]
  - Oedema peripheral [Recovered/Resolved]
  - Vomiting [Unknown]
  - Genital disorder female [Unknown]
  - Haematocrit decreased [Not Recovered/Not Resolved]
  - Acute sinusitis [Unknown]
  - Nausea [Unknown]
  - Pain [Not Recovered/Not Resolved]

NARRATIVE: CASE EVENT DATE: 20170502
